FAERS Safety Report 6579892-6 (Version None)
Quarter: 2010Q1

REPORT INFORMATION
  Report Type: 
  Country: None (occurrence: None)
  Receive Date: 20100212
  Receipt Date: 20100209
  Transmission Date: 20100710
  Serious: Yes (Hospitalization, Other)
  Sender: FDA-Public Use
  Company Number: IT-BRISTOL-MYERS SQUIBB COMPANY-14971899

PATIENT
  Age: 84 Year
  Sex: Male

DRUGS (5)
  1. COUMADIN [Suspect]
     Indication: ATRIAL FIBRILLATION
     Route: 048
     Dates: start: 20050317, end: 20100130
  2. SIVASTIN [Concomitant]
     Dosage: SIVASTIN FILM COATED ORAL TABLETS
     Route: 048
  3. ADALAT [Concomitant]
     Dosage: ADALAT CRONO 30 MG MODIFIED RELEASE ORAL TABS
     Route: 048
  4. ANTRA [Concomitant]
     Dosage: ANTRA 20 MG MODIFIED RELEASE ORAL CAPS
     Route: 048
  5. ZOPRANOL [Concomitant]
     Dosage: ZOPRANOL 30 MG FILM COATED ORAL TABS
     Route: 048

REACTIONS (2)
  - FALL [None]
  - SUBDURAL HAEMORRHAGE [None]
